FAERS Safety Report 10238762 (Version 2)
Quarter: 2014Q2

REPORT INFORMATION
  Report Type: Spontaneous
  Country: US (occurrence: US)
  Receive Date: 20140616
  Receipt Date: 20140616
  Transmission Date: 20141212
  Serious: Yes (Hospitalization, Other)
  Sender: FDA-Public Use
  Company Number: US-ELI_LILLY_AND_COMPANY-US201406001354

PATIENT
  Sex: Female

DRUGS (4)
  1. HUMALOG LISPRO [Suspect]
     Indication: TYPE 1 DIABETES MELLITUS
     Dosage: UNK
     Route: 065
     Dates: start: 2001
  2. HUMALOG LISPRO [Suspect]
     Dosage: UNK, PRN
     Route: 065
  3. HUMALOG LISPRO [Suspect]
     Indication: TYPE 1 DIABETES MELLITUS
     Dosage: UNK, PRN
     Route: 065
  4. LANTUS [Concomitant]

REACTIONS (21)
  - Transient ischaemic attack [Unknown]
  - Convulsion [Unknown]
  - Cerebrovascular accident [Unknown]
  - Pyrexia [Recovered/Resolved]
  - Sepsis [Unknown]
  - Intestinal ulcer [Unknown]
  - Burns fourth degree [Unknown]
  - Connective tissue disorder [Unknown]
  - Immunodeficiency [Unknown]
  - Urethral disorder [Unknown]
  - Oral disorder [Unknown]
  - Stress [Unknown]
  - Visual impairment [Unknown]
  - Malaise [Unknown]
  - Macule [Unknown]
  - Memory impairment [Unknown]
  - Pyrexia [Unknown]
  - Nephrolithiasis [Unknown]
  - Panic attack [Not Recovered/Not Resolved]
  - Blood glucose increased [Unknown]
  - Dysphonia [Unknown]
